FAERS Safety Report 8414120 (Version 3)
Quarter: 2013Q1

REPORT INFORMATION
  Report Type: Spontaneous
  Country: US (occurrence: US)
  Receive Date: 20120218
  Receipt Date: 20130119
  Transmission Date: 20140127
  Serious: No
  Sender: FDA-Public Use
  Company Number: US-ALLERGAN-1103023US

PATIENT
  Age: 76 Year
  Sex: Female

DRUGS (6)
  1. BOTOX? [Suspect]
     Indication: HEADACHE
     Dosage: 170 UNITS, SINGLE
     Route: 030
     Dates: start: 20110228, end: 20110228
  2. BOTOX? [Suspect]
     Dosage: UNK
     Dates: start: 2009, end: 2009
  3. LORATAB [Concomitant]
     Indication: PAIN
     Dosage: UNK
     Route: 048
  4. AMITRIPTYLINE [Concomitant]
     Indication: PRODUCT USED FOR UNKNOWN INDICATION
     Dosage: UNK
  5. XANAX [Concomitant]
     Indication: ANXIETY
     Dosage: 0.5 MG, PRN
  6. PROZAC [Concomitant]
     Indication: DEPRESSION
     Dosage: 40 MG, QD
     Route: 048

REACTIONS (10)
  - Feeling abnormal [Recovered/Resolved]
  - Feeling cold [Recovered/Resolved]
  - Fatigue [Recovered/Resolved]
  - Vision blurred [Recovered/Resolved]
  - Diplopia [Recovered/Resolved]
  - Dizziness [Recovered/Resolved]
  - Asthenia [Recovered/Resolved]
  - Nausea [Recovered/Resolved]
  - Influenza like illness [Recovered/Resolved]
  - Drug ineffective [Unknown]
